FAERS Safety Report 6303832-8 (Version None)
Quarter: 2009Q3

REPORT INFORMATION
  Report Type: 
  Country: None (occurrence: None)
  Receive Date: 20090807
  Receipt Date: 20090807
  Transmission Date: 20100115
  Serious: Yes (Hospitalization)
  Sender: FDA-Public Use
  Company Number: None

PATIENT
  Sex: Female
  Weight: 59.7 kg

DRUGS (9)
  1. ZYPREXA [Suspect]
     Indication: BIPOLAR DISORDER
     Dosage: 5 MG@HS
     Dates: start: 20070709
  2. ZYPREXA [Suspect]
     Indication: SCHIZOAFFECTIVE DISORDER
     Dosage: 5 MG@HS
     Dates: start: 20070709
  3. ATENOLOL [Concomitant]
  4. ASPIRIN [Concomitant]
  5. TAPAZOLE [Concomitant]
  6. PRILOSEC [Concomitant]
  7. OXYBUTININ ER [Concomitant]
  8. IPRATROPIUM INHALER [Concomitant]
  9. ULTRAM [Concomitant]

REACTIONS (1)
  - GASTROINTESTINAL HAEMORRHAGE [None]
